FAERS Safety Report 8160660-9 (Version None)
Quarter: 2012Q1

REPORT INFORMATION
  Report Type: 
  Country: None (occurrence: None)
  Receive Date: 20120223
  Receipt Date: 20120210
  Transmission Date: 20120608
  Serious: Yes (Other)
  Sender: FDA-Public Use
  Company Number: ES-ROCHE-1022218

PATIENT
  Age: 79 Year
  Sex: Female

DRUGS (1)
  1. BONIVA [Suspect]
     Indication: OSTEOPOROSIS
     Route: 048

REACTIONS (12)
  - MOOD ALTERED [None]
  - OEDEMA PERIPHERAL [None]
  - CHEST PAIN [None]
  - THINKING ABNORMAL [None]
  - INFLUENZA [None]
  - FATIGUE [None]
  - TINNITUS [None]
  - NASOPHARYNGITIS [None]
  - ANXIETY [None]
  - BREAST SWELLING [None]
  - NERVOUSNESS [None]
  - TACHYCARDIA [None]
